FAERS Safety Report 5725261-8 (Version None)
Quarter: 2008Q2

REPORT INFORMATION
  Report Type: 
  Country: None (occurrence: None)
  Receive Date: 20080429
  Receipt Date: 20080414
  Transmission Date: 20081010
  Serious: Yes (Hospitalization)
  Sender: FDA-Public Use
  Company Number: B0517363A

PATIENT
  Age: 14 Year
  Sex: Female

DRUGS (3)
  1. CEFUROXIME AXETIL [Suspect]
     Indication: SINUSITIS
     Dosage: ORAL
     Route: 048
  2. AMOXICILLIN SODIUM + POTASSIUM CLAVULANATE (FORMULATION UNKN (AMOX.NA [Suspect]
     Indication: SINUSITIS
  3. AZITHROMYCIN [Suspect]
     Indication: SINUSITIS

REACTIONS (8)
  - DISEASE RECURRENCE [None]
  - EOSINOPHILIA [None]
  - LEUKOCYTOSIS [None]
  - NEPHRITIS INTERSTITIAL [None]
  - RENAL FAILURE [None]
  - SINUSITIS [None]
  - URTICARIA [None]
  - VOMITING [None]
